FAERS Safety Report 8960967 (Version 1)
Quarter: 2012Q4

REPORT INFORMATION
  Report Type: 
  Country: US (occurrence: US)
  Receive Date: 20121212
  Receipt Date: 20121212
  Transmission Date: 20130627
  Serious: No
  Sender: FDA-Public Use
  Company Number: US-009507513-1212USA001791

PATIENT
  Age: 28 Year
  Sex: Female

DRUGS (4)
  1. VICTRELIS [Suspect]
     Indication: HEPATITIS C
     Dosage: 800 mg, tid
     Route: 048
     Dates: start: 20120712
  2. RIBAVIRIN [Suspect]
     Route: 048
  3. PEGINTRON [Suspect]
     Route: 058
  4. PEGINTRON [Suspect]
     Dosage: UNK

REACTIONS (2)
  - Anaemia [Unknown]
  - Alopecia [Unknown]
